FAERS Safety Report 11651380 (Version 2)
Quarter: 2015Q4

REPORT INFORMATION
  Report Type: Spontaneous
  Country: CA (occurrence: CA)
  Receive Date: 20151022
  Receipt Date: 20151202
  Transmission Date: 20160304
  Serious: Yes (Life-Threatening, Hospitalization, Other)
  Sender: FDA-Public Use
  Company Number: CA-ROCHE-1649341

PATIENT
  Age: 60 Year
  Sex: Female

DRUGS (6)
  1. IRINOTECAN [Concomitant]
     Active Substance: IRINOTECAN
     Indication: COLON CANCER METASTATIC
  2. ZOPICLONE [Concomitant]
     Active Substance: ZOPICLONE
     Route: 048
  3. LEUCOVORIN. [Suspect]
     Active Substance: LEUCOVORIN
     Indication: COLON CANCER METASTATIC
     Route: 042
     Dates: start: 20151014, end: 20151014
  4. AVASTIN [Suspect]
     Active Substance: BEVACIZUMAB
     Indication: COLON CANCER METASTATIC
     Dosage: 5MG/KG
     Route: 042
     Dates: start: 20151014, end: 20151014
  5. 5-FLUOROURACIL [Suspect]
     Active Substance: FLUOROURACIL
     Indication: COLON CANCER METASTATIC
     Route: 042
     Dates: start: 20151014, end: 20151016
  6. MIRTAZAPINE. [Concomitant]
     Active Substance: MIRTAZAPINE
     Route: 048

REACTIONS (15)
  - Syncope [Unknown]
  - Hypotension [Unknown]
  - Ejection fraction [Unknown]
  - Confusional state [Unknown]
  - Pulmonary oedema [Unknown]
  - Discomfort [Unknown]
  - Dyspnoea [Unknown]
  - Pallor [Unknown]
  - Tachycardia [Unknown]
  - Lung infection [Unknown]
  - Cardiogenic shock [Recovered/Resolved]
  - Delirium [Unknown]
  - Cardiac failure [Unknown]
  - Cardiomyopathy [Unknown]
  - Pain [Unknown]

NARRATIVE: CASE EVENT DATE: 20151016
